FAERS Safety Report 19394974 (Version 9)
Quarter: 2022Q3

REPORT INFORMATION
  Report Type: Report from Study
  Country: AU (occurrence: AU)
  Receive Date: 20210609
  Receipt Date: 20220923
  Transmission Date: 20221027
  Serious: Yes (Hospitalization, Other)
  Sender: FDA-Public Use
  Company Number: AU-TAKEDA-AU202022232

PATIENT
  Age: 65 Year
  Sex: Female
  Weight: 75 kg

DRUGS (7)
  1. VELAGLUCERASE ALFA [Suspect]
     Active Substance: VELAGLUCERASE ALFA
     Indication: Gaucher^s disease
     Dosage: 1600 INTERNATIONAL UNIT, 1X/2WKS
     Route: 042
  2. VELAGLUCERASE ALFA [Suspect]
     Active Substance: VELAGLUCERASE ALFA
     Dosage: 1600 INTERNATIONAL UNIT, 1X/2WKS
     Route: 042
  3. VELAGLUCERASE ALFA [Suspect]
     Active Substance: VELAGLUCERASE ALFA
     Dosage: 1600 INTERNATIONAL UNIT, Q2WEEKS
     Route: 042
     Dates: start: 20200709
  4. VELAGLUCERASE ALFA [Suspect]
     Active Substance: VELAGLUCERASE ALFA
     Dosage: 1600 INTERNATIONAL UNIT, Q2WEEKS
     Route: 042
     Dates: start: 20200709
  5. VELAGLUCERASE ALFA [Suspect]
     Active Substance: VELAGLUCERASE ALFA
     Dosage: 1600 INTERNATIONAL UNIT, Q2WEEKS
     Route: 042
     Dates: start: 20200709
  6. VELAGLUCERASE ALFA [Suspect]
     Active Substance: VELAGLUCERASE ALFA
     Dosage: UNK
     Route: 065
  7. PERINDOPRIL ERBUMINE [Concomitant]
     Active Substance: PERINDOPRIL ERBUMINE
     Dosage: UNK
     Route: 065

REACTIONS (18)
  - Mitral valve disease [Not Recovered/Not Resolved]
  - Epistaxis [Recovered/Resolved]
  - Syncope [Unknown]
  - Malaise [Unknown]
  - Blood pressure decreased [Recovered/Resolved]
  - Vomiting [Recovered/Resolved]
  - Lethargy [Recovered/Resolved]
  - Dizziness [Recovered/Resolved]
  - Palpitations [Recovered/Resolved]
  - Inguinal hernia [Recovered/Resolved]
  - Venous injury [Recovered/Resolved]
  - Poor venous access [Recovered/Resolved]
  - Infusion site bruising [Recovered/Resolved]
  - Dehydration [Recovered/Resolved]
  - Heart rate increased [Recovered/Resolved]
  - Hypertension [Recovered/Resolved]
  - Inappropriate schedule of product administration [Recovered/Resolved]
  - COVID-19 [Recovered/Resolved]

NARRATIVE: CASE EVENT DATE: 20210310
